FAERS Safety Report 13893766 (Version 1)
Quarter: 2017Q3

REPORT INFORMATION
  Report Type: Report from Study
  Country: US (occurrence: BR)
  Receive Date: 20170822
  Receipt Date: 20170822
  Transmission Date: 20171127
  Serious: Yes (Hospitalization, Other)
  Sender: FDA-Public Use
  Company Number: US-SUNOVION-2017SUN003688

PATIENT
  Sex: Female
  Weight: 58 kg

DRUGS (2)
  1. INDACATEROL AND GLYCOPYRROLATE [Suspect]
     Active Substance: GLYCOPYRROLATE\INDACATEROL MALEATE
     Indication: FIBROSIS
     Dosage: 1 DF (50/110), QD
     Route: 055
  2. OXYGEN. [Concomitant]
     Active Substance: OXYGEN

REACTIONS (4)
  - Pneumonia [Unknown]
  - Product use in unapproved indication [Unknown]
  - Respiratory disorder [Unknown]
  - Malaise [Unknown]
